FAERS Safety Report 6233980-2 (Version None)
Quarter: 2009Q2

REPORT INFORMATION
  Report Type: 
  Country: None (occurrence: None)
  Receive Date: 20090618
  Receipt Date: 20090615
  Transmission Date: 20091009
  Serious: Yes (Hospitalization)
  Sender: FDA-Public Use
  Company Number: US-SP-2009-02606

PATIENT
  Age: 52 Year
  Sex: Male

DRUGS (1)
  1. THERACYS [Suspect]
     Indication: BLADDER CANCER
     Route: 065

REACTIONS (3)
  - ANOREXIA [None]
  - LUNG NEOPLASM [None]
  - PYREXIA [None]
